FAERS Safety Report 7574247-X (Version None)
Quarter: 2011Q2

REPORT INFORMATION
  Report Type: 
  Country: None (occurrence: None)
  Receive Date: 20110627
  Receipt Date: 20110517
  Transmission Date: 20111010
  Serious: No
  Sender: FDA-Public Use
  Company Number: US-BAYER-2011-043570

PATIENT
  Sex: Female

DRUGS (1)
  1. ALEVE (CAPLET) [Suspect]
     Indication: SELF-INJURIOUS IDEATION
     Dosage: 8 DF, ONCE
     Route: 048
     Dates: start: 20110516

REACTIONS (1)
  - MALAISE [None]
